FAERS Safety Report 7072542-4 (Version None)
Quarter: 2010Q4

REPORT INFORMATION
  Report Type: 
  Country: None (occurrence: None)
  Receive Date: 20101029
  Receipt Date: 20100302
  Transmission Date: 20110411
  Serious: No
  Sender: FDA-Public Use
  Company Number: A0843744A

PATIENT
  Age: 43 Year
  Sex: Female
  Weight: 104.1 kg

DRUGS (1)
  1. ADVAIR DISKUS 100/50 [Suspect]
     Indication: PRODUCT USED FOR UNKNOWN INDICATION
     Dosage: 1PUFF TWICE PER DAY

REACTIONS (2)
  - ABSCESS [None]
  - MOUTH ULCERATION [None]
